FAERS Safety Report 23195765 (Version 3)
Quarter: 2023Q4

REPORT INFORMATION
  Report Type: Spontaneous
  Country: US (occurrence: US)
  Receive Date: 20231117
  Receipt Date: 20231228
  Transmission Date: 20240110
  Serious: Yes (Other)
  Sender: FDA-Public Use
  Company Number: US-AMGEN-USASP2023203308

PATIENT
  Age: 70 Year
  Sex: Female

DRUGS (3)
  1. TAVNEOS [Suspect]
     Active Substance: AVACOPAN
     Indication: Antineutrophil cytoplasmic antibody
     Dosage: 30 MILLIGRAM, BID (3 CAPSULES BY MOUTH 2 TIMES A DAY WITH MEALS)
     Route: 048
     Dates: start: 20230926
  2. TAVNEOS [Suspect]
     Active Substance: AVACOPAN
     Dosage: 10 MILLIGRAM, BID (1 CAPSULE TWICE DAILY)
     Route: 065
     Dates: start: 20231021
  3. TAVNEOS [Suspect]
     Active Substance: AVACOPAN
     Dosage: 20 MILLIGRAM, BID (2 CAPSULES TWICE DAILY)
     Route: 065
     Dates: start: 20231028

REACTIONS (13)
  - Renal impairment [Unknown]
  - Pruritus [Unknown]
  - Erythema [Unknown]
  - Blood sodium decreased [Unknown]
  - Blood chloride decreased [Unknown]
  - Glomerular filtration rate decreased [Unknown]
  - Blood urea increased [Unknown]
  - Blood creatine increased [Unknown]
  - Protein urine [Unknown]
  - Off label use [Unknown]
  - Skin lesion [Unknown]
  - Diarrhoea [Unknown]
  - Dysphonia [Unknown]

NARRATIVE: CASE EVENT DATE: 20230101
